FAERS Safety Report 6048133-0 (Version None)
Quarter: 2009Q1

REPORT INFORMATION
  Report Type: 
  Country: None (occurrence: None)
  Receive Date: 20090122
  Receipt Date: 20090122
  Transmission Date: 20090719
  Serious: Yes (Other)
  Sender: FDA-Public Use
  Company Number: None

PATIENT
  Sex: Female

DRUGS (1)
  1. CHLORAPREP CHORHEXADINE GLUCONATE 2% AND ISOPROPYL ALCOHOL 10% ENTURIA [Suspect]
     Indication: INFECTION PROPHYLAXIS
     Dosage: SEE ABOVE
     Dates: start: 20010101, end: 20010101

REACTIONS (2)
  - MEDICATION ERROR [None]
  - THERMAL BURN [None]
